FAERS Safety Report 5776528-9 (Version None)
Quarter: 2008Q2

REPORT INFORMATION
  Report Type: 
  Country: None (occurrence: None)
  Receive Date: 20080616
  Receipt Date: 20080529
  Transmission Date: 20081010
  Serious: Yes (Hospitalization)
  Sender: FDA-Public Use
  Company Number: 2008AL005912

PATIENT
  Age: 52 Year
  Sex: Male
  Weight: 81.6475 kg

DRUGS (5)
  1. DIGOXIN [Suspect]
     Indication: ATRIAL FIBRILLATION
     Dosage: 0.25 MG DAILY PO
     Route: 048
  2. METOPROLOL [Concomitant]
  3. XANAX [Concomitant]
  4. OXYCODONE HCL [Concomitant]
  5. ALBUTEROL [Concomitant]

REACTIONS (9)
  - CHEST PAIN [None]
  - CONVULSION [None]
  - DIZZINESS [None]
  - EPISTAXIS [None]
  - FALL [None]
  - LOSS OF CONSCIOUSNESS [None]
  - PALPITATIONS [None]
  - PHARMACEUTICAL PRODUCT COMPLAINT [None]
  - TREMOR [None]
